FAERS Safety Report 4379926-3 (Version None)
Quarter: 2004Q2

REPORT INFORMATION
  Report Type: 
  Country: None (occurrence: None)
  Receive Date: 20040614
  Receipt Date: 20040609
  Transmission Date: 20050107
  Serious: Yes (Disabling)
  Sender: FDA-Public Use
  Company Number: 2004-05-1596

PATIENT
  Age: 47 Year
  Sex: Male

DRUGS (6)
  1. PEG-INTRON (PEGINTERFERON ALFA-2B) INJECTABLE POWDER [Suspect]
     Indication: HEPATITIS ACUTE
     Dosage: 80 MCG SUBCUTANEOUS
     Route: 058
     Dates: start: 20020225, end: 20020825
  2. PEG-INTRON (PEGINTERFERON ALFA-2B) INJECTABLE POWDER [Suspect]
     Indication: HEPATITIS ACUTE
     Dosage: 80 MCG SUBCUTANEOUS
     Route: 058
     Dates: end: 20020825
  3. PEG-INTRON (PEGINTERFERON ALFA-2B) INJECTABLE POWDER [Suspect]
     Indication: HEPATITIS ACUTE
     Dosage: 80 MCG SUBCUTANEOUS
     Route: 058
     Dates: start: 20020225
  4. REBETOL [Suspect]
     Indication: HEPATITIS ACUTE
     Dosage: 1000 MG ORAL
     Route: 048
     Dates: start: 20020225, end: 20020825
  5. REBETOL [Suspect]
     Indication: HEPATITIS ACUTE
     Dosage: 1000 MG ORAL
     Route: 048
     Dates: end: 20020825
  6. REBETOL [Suspect]
     Indication: HEPATITIS ACUTE
     Dosage: 1000 MG ORAL
     Route: 048
     Dates: start: 20020225

REACTIONS (5)
  - ASTHENIA [None]
  - EJACULATION DISORDER [None]
  - ERECTILE DYSFUNCTION [None]
  - LIBIDO DECREASED [None]
  - MYALGIA [None]
